FAERS Safety Report 7893257-6 (Version None)
Quarter: 2011Q4

REPORT INFORMATION
  Report Type: 
  Country: None (occurrence: None)
  Receive Date: 20111104
  Receipt Date: 20111031
  Transmission Date: 20120403
  Serious: Yes (Death)
  Sender: FDA-Public Use
  Company Number: PHHY2011PE96724

PATIENT
  Sex: Female

DRUGS (1)
  1. EXFORGE [Suspect]
     Indication: HYPERTENSION
     Dosage: 1 DF, (80/5 MG DAILY)
     Dates: start: 20110811

REACTIONS (2)
  - PNEUMONIA [None]
  - CEREBROVASCULAR ACCIDENT [None]
